FAERS Safety Report 26207269 (Version 1)
Quarter: 2025Q4

REPORT INFORMATION
  Report Type: Spontaneous
  Country: GB (occurrence: GB)
  Receive Date: 20251229
  Receipt Date: 20251229
  Transmission Date: 20260118
  Serious: Yes (Disabling, Other)
  Sender: AUROBINDO
  Company Number: GB-MHRA-MED-202510121821165360-SPHMF

PATIENT
  Age: 40 Year
  Sex: Male

DRUGS (1)
  1. SERTRALINE [Suspect]
     Active Substance: SERTRALINE HYDROCHLORIDE
     Indication: Product used for unknown indication
     Dosage: 100 MILLIGRAM, ONCE A DAY (100MG A DAY)
     Route: 065
     Dates: start: 20150701, end: 20240701

REACTIONS (11)
  - Sexual dysfunction [Not Recovered/Not Resolved]
  - Drug withdrawal syndrome [Unknown]
  - Tinnitus [Not Recovered/Not Resolved]
  - Suicidal ideation [Unknown]
  - Memory impairment [Unknown]
  - Anhedonia [Unknown]
  - Lethargy [Unknown]
  - Sleep disorder [Unknown]
  - Fatigue [Unknown]
  - Panic attack [Unknown]
  - Abnormal dreams [Unknown]

NARRATIVE: CASE EVENT DATE: 20240701
